FAERS Safety Report 7688917-6 (Version None)
Quarter: 2011Q3

REPORT INFORMATION
  Report Type: 
  Country: None (occurrence: None)
  Receive Date: 20110817
  Receipt Date: 20110809
  Transmission Date: 20111222
  Serious: Yes (Other)
  Sender: FDA-Public Use
  Company Number: PHBS2008ES05419

PATIENT
  Age: 54 Year
  Sex: Female

DRUGS (2)
  1. ZOMETA [Suspect]
     Indication: BONE PAIN
     Dosage: 4 MG, TIW
     Route: 042
     Dates: start: 20040101, end: 20050801
  2. ZOMETA [Suspect]
     Indication: MULTIPLE MYELOMA

REACTIONS (9)
  - EXPOSED BONE IN JAW [None]
  - OSTEONECROSIS OF JAW [None]
  - SWELLING [None]
  - GINGIVAL ULCERATION [None]
  - PAIN IN JAW [None]
  - DENTAL CARIES [None]
  - PATHOLOGICAL FRACTURE [None]
  - PRIMARY SEQUESTRUM [None]
  - OSTEOLYSIS [None]
